FAERS Safety Report 14321090 (Version 4)
Quarter: 2018Q2

REPORT INFORMATION
  Report Type: Spontaneous
  Country: DE (occurrence: DE)
  Receive Date: 20171223
  Receipt Date: 20180407
  Transmission Date: 20180711
  Serious: Yes (Other)
  Sender: FDA-Public Use
  Company Number: DE-AUROBINDO-AUR-APL-2017-46762

PATIENT
  Age: 36 Year
  Sex: Female
  Weight: 84 kg

DRUGS (5)
  1. TIABENDAZOLE [Concomitant]
     Active Substance: THIABENDAZOLE
     Indication: PSORIASIS
     Dosage: UNK ()
     Route: 065
     Dates: start: 20161122, end: 20170110
  2. AMOXICILLIN+CLAVULANIC ACID FILM-COATED TABLETS [Suspect]
     Active Substance: AMOXICILLIN\CLAVULANIC ACID
     Indication: BRONCHITIS
     Dosage: 1 G, BID
     Route: 048
     Dates: start: 20170113, end: 20170115
  3. ENBREL [Suspect]
     Active Substance: ETANERCEPT
     Indication: PSORIATIC ARTHROPATHY
     Dosage: 50 MG, Z ONCE PER WEEK
     Route: 065
     Dates: start: 20160913, end: 20170304
  4. BETAMETHASONE. [Concomitant]
     Active Substance: BETAMETHASONE
     Indication: PSORIASIS
     Dosage: 1 %, UNK
     Route: 065
     Dates: start: 20161122, end: 201701
  5. ENBREL [Suspect]
     Active Substance: ETANERCEPT
     Indication: PSORIASIS
     Dosage: 50 MG, Z (WE)
     Route: 065
     Dates: start: 20170225, end: 20170904

REACTIONS (4)
  - Drug hypersensitivity [Recovered/Resolved]
  - Bronchitis [Recovered/Resolved]
  - Rash maculo-papular [Recovered/Resolved]
  - Rash generalised [Recovered/Resolved]

NARRATIVE: CASE EVENT DATE: 20170113
